FAERS Safety Report 8249780-8 (Version None)
Quarter: 2012Q2

REPORT INFORMATION
  Report Type: 
  Country: None (occurrence: None)
  Receive Date: 20120402
  Receipt Date: 20120321
  Transmission Date: 20120825
  Serious: Yes (Hospitalization)
  Sender: FDA-Public Use
  Company Number: PHHY2012AR025112

PATIENT
  Sex: Male

DRUGS (1)
  1. GLEEVEC [Suspect]
     Indication: GASTROINTESTINAL CARCINOMA
     Dosage: 400 MG, DAILY
     Dates: start: 20070102

REACTIONS (3)
  - NEOPLASM RECURRENCE [None]
  - GASTROINTESTINAL CARCINOMA [None]
  - INCONTINENCE [None]
